FAERS Safety Report 16900277 (Version 4)
Quarter: 2020Q1

REPORT INFORMATION
  Report Type: Spontaneous
  Country: JP (occurrence: JP)
  Receive Date: 20191009
  Receipt Date: 20200303
  Transmission Date: 20200409
  Serious: Yes (Death, Other)
  Sender: FDA-Public Use
  Company Number: JP-JAZZ-2019-JP-013923

PATIENT
  Age: 15 Year
  Sex: Female
  Weight: 43.4 kg

DRUGS (3)
  1. DEFITELIO [Suspect]
     Active Substance: DEFIBROTIDE SODIUM
     Indication: VENOOCCLUSIVE LIVER DISEASE
     Dosage: 12.5 MILLIGRAM/KILOGRAM/DAY
     Route: 042
     Dates: start: 20190913, end: 20190913
  2. DEFITELIO [Suspect]
     Active Substance: DEFIBROTIDE SODIUM
     Dosage: 12.5 MILLIGRAM/KILOGRAM/DAY
     Route: 042
     Dates: start: 20101007, end: 20191007
  3. DEFITELIO [Suspect]
     Active Substance: DEFIBROTIDE SODIUM
     Dosage: 25 MILLIGRAM/KILOGRAM/DAY
     Route: 042
     Dates: start: 20190914, end: 20191006

REACTIONS (7)
  - Sepsis [Fatal]
  - Haemorrhage subcutaneous [Recovering/Resolving]
  - Engraft failure [Fatal]
  - Haematuria [Not Recovered/Not Resolved]
  - Epistaxis [Not Recovered/Not Resolved]
  - Hypotension [Recovered/Resolved]
  - Off label use [Unknown]

NARRATIVE: CASE EVENT DATE: 20190913
